FAERS Safety Report 9764162 (Version 1)
Quarter: 2013Q4

REPORT INFORMATION
  Report Type: Report from Study
  Country: BR (occurrence: BR)
  Receive Date: 20131216
  Receipt Date: 20131216
  Transmission Date: 20140711
  Serious: Yes (Other)
  Sender: FDA-Public Use
  Company Number: PHHY2013BR146927

PATIENT
  Sex: Male
  Weight: 92 kg

DRUGS (7)
  1. EXELON PATCH [Suspect]
     Indication: MEMORY IMPAIRMENT
     Dosage: 5 MG, UNK
     Route: 062
     Dates: start: 201310, end: 201311
  2. EXELON PATCH [Suspect]
     Dosage: 9.5 MG (PATCH 10 CM2), DAILY
     Route: 062
     Dates: start: 201311
  3. GALVUS [Concomitant]
     Dosage: UNK UKN, UNK
  4. LIPISTAT//ATORVASTATIN CALCIUM [Concomitant]
     Indication: BLOOD CHOLESTEROL ABNORMAL
     Dosage: UNK UKN, UNK
  5. ATENSINE [Concomitant]
     Dosage: UNK UKN, UNK
  6. DIOVAN [Concomitant]
     Dosage: UNK UKN, UNK
  7. ASSERT [Concomitant]
     Indication: BLOOD PRESSURE ABNORMAL
     Dosage: UNK UKN, UNK

REACTIONS (3)
  - Gastrointestinal candidiasis [Unknown]
  - Gastrointestinal disorder [Unknown]
  - Depression [Recovering/Resolving]
